FAERS Safety Report 5451236-2 (Version None)
Quarter: 2007Q3

REPORT INFORMATION
  Report Type: 
  Country: None (occurrence: None)
  Receive Date: 20070913
  Receipt Date: 20070906
  Transmission Date: 20080115
  Serious: Yes (Other)
  Sender: FDA-Public Use
  Company Number: HQWYE067807SEP07

PATIENT
  Age: 27 Year
  Sex: Male

DRUGS (5)
  1. ADVIL LIQUI-GELS [Suspect]
     Dosage: UNKNOWN
     Route: 048
     Dates: start: 20070821, end: 20070823
  2. ASPIRIN [Suspect]
     Dosage: UNKNOWN
     Route: 048
     Dates: start: 20070821, end: 20070823
  3. ADVIL PM [Suspect]
     Dosage: UNKNOWN
     Route: 048
     Dates: start: 20070821, end: 20070823
  4. MOTRIN IB [Suspect]
     Indication: PAIN
     Dosage: UNKNOWN AMOUNT OF 200 MG TABLETS
     Route: 048
     Dates: start: 20070821, end: 20070823
  5. TYLENOL EXTRA STRENGTH [Suspect]
     Indication: PAIN
     Dosage: UNKNOWN
     Route: 048
     Dates: start: 20070821, end: 20070823

REACTIONS (4)
  - DIZZINESS [None]
  - DYSSTASIA [None]
  - HAEMATEMESIS [None]
  - INTENTIONAL OVERDOSE [None]
